FAERS Safety Report 24736250 (Version 2)
Quarter: 2024Q4

REPORT INFORMATION
  Report Type: Spontaneous
  Country: US (occurrence: US)
  Receive Date: 20241216
  Receipt Date: 20241220
  Transmission Date: 20250114
  Serious: Yes (Other)
  Sender: RECKITT BENCKISER
  Company Number: US-PROD-AS2-212756134-20-24-USA-RB-0013851

PATIENT
  Age: 71 Year
  Sex: Female
  Weight: 90.718 kg

DRUGS (1)
  1. MUCINEX INSTASOOTHE SORE THROAT PLUS SOOTHING COMFORT [Suspect]
     Active Substance: HEXYLRESORCINOL
     Indication: Product used for unknown indication
     Dosage: 1 DF SINGLE
     Route: 048
     Dates: start: 20241205, end: 20241205

REACTIONS (5)
  - Syncope [Recovered/Resolved]
  - Blood pressure increased [Recovered/Resolved]
  - Dizziness [Recovered/Resolved]
  - Anxiety [Recovered/Resolved]
  - Headache [Not Recovered/Not Resolved]

NARRATIVE: CASE EVENT DATE: 20241205
